FAERS Safety Report 14328276 (Version 2)
Quarter: 2018Q3

REPORT INFORMATION
  Report Type: Spontaneous
  Country: US (occurrence: US)
  Receive Date: 20171227
  Receipt Date: 20180730
  Transmission Date: 20181010
  Serious: Yes (Other)
  Sender: FDA-Public Use
  Company Number: US-PFIZER INC-2017548592

PATIENT
  Age: 75 Year
  Sex: Male
  Weight: 61.69 kg

DRUGS (1)
  1. SUTENT [Suspect]
     Active Substance: SUNITINIB MALATE
     Indication: RENAL CELL CARCINOMA
     Dosage: 50 MG, CYCLIC, 50MG ONE TABLET BY MOUTH DAILY 4 WEEKS ON 2 WEEKS OFF
     Route: 048
     Dates: start: 201211, end: 201604

REACTIONS (2)
  - Neoplasm progression [Unknown]
  - Aspergillus infection [Not Recovered/Not Resolved]

NARRATIVE: CASE EVENT DATE: 2017
